FAERS Safety Report 8996750 (Version 1)
Quarter: 2012Q4

REPORT INFORMATION
  Report Type: Spontaneous
  Country: US (occurrence: None)
  Receive Date: 20121228
  Receipt Date: 20121228
  Transmission Date: 20130627
  Serious: Yes (Other)
  Sender: FDA-Public Use
  Company Number: None

PATIENT
  Age: 48 Year
  Sex: Female
  Weight: 90.72 kg

DRUGS (1)
  1. ZZZQUIL NIGHTTIME SLEEP-AID [Suspect]
     Indication: INSOMNIA
     Dosage: 1 teaspoon

REACTIONS (4)
  - Amnesia [None]
  - Anxiety [None]
  - Confusional state [None]
  - Disturbance in attention [None]
